FAERS Safety Report 25994842 (Version 1)
Quarter: 2025Q4

REPORT INFORMATION
  Report Type: Spontaneous
  Country: US (occurrence: US)
  Receive Date: 20251104
  Receipt Date: 20251104
  Transmission Date: 20260118
  Serious: No
  Sender: Onesource Specialty Pharma
  Company Number: US-STRIDES ARCOLAB LIMITED-2025-ST-001161

PATIENT
  Age: 20 Year
  Sex: Female

DRUGS (3)
  1. BUPIVACAINE [Suspect]
     Active Substance: BUPIVACAINE
     Indication: Spinal anaesthesia
     Dosage: RECEIVED IN A SITTING POSITION IN A SINGLE SHOT
  2. MORPHINE [Suspect]
     Active Substance: MORPHINE
     Indication: Spinal anaesthesia
     Dosage: RECEIVED IN A SITTING POSITION IN A SINGLE SHOT
  3. FENTANYL [Suspect]
     Active Substance: FENTANYL
     Indication: Spinal anaesthesia
     Dosage: RECEIVED IN A SITTING POSITION IN A SINGLE SHOT

REACTIONS (1)
  - Maternal exposure during delivery [Unknown]
